FAERS Safety Report 8048973-2 (Version None)
Quarter: 2012Q1

REPORT INFORMATION
  Report Type: 
  Country: None (occurrence: None)
  Receive Date: 20120117
  Receipt Date: 20120113
  Transmission Date: 20120608
  Serious: No
  Sender: FDA-Public Use
  Company Number: US-PFIZER INC-2012011059

PATIENT
  Sex: Female
  Weight: 78.005 kg

DRUGS (8)
  1. MULTI-VITAMINS [Concomitant]
     Dosage: UNK
  2. SIMVASTATIN [Concomitant]
     Indication: BLOOD CHOLESTEROL ABNORMAL
     Dosage: 20 MG, DAILY
  3. UNASYN [Suspect]
     Dosage: UNK
  4. EVISTA [Concomitant]
     Indication: BONE DISORDER
     Dosage: 60 MG, DAILY
  5. VERAPAMIL [Concomitant]
     Indication: CARDIAC DISORDER
     Dosage: 180 MG, DAILY
  6. ACETYLSALICYLIC ACID [Concomitant]
     Dosage: 325 MG, DAILY
  7. LOSARTAN POTASSIUM [Concomitant]
     Indication: BLOOD PRESSURE ABNORMAL
     Dosage: 50 MG, DAILY
  8. SITAGLIPTIN AND METFORMIN HYDROCHLORIDE [Concomitant]
     Indication: DIABETES MELLITUS
     Dosage: 50/1000 MG, DAILY

REACTIONS (1)
  - HYPERSENSITIVITY [None]
